FAERS Safety Report 18165102 (Version 1)
Quarter: 2020Q3

REPORT INFORMATION
  Report Type: Report from Study
  Country: US (occurrence: US)
  Receive Date: 20200818
  Receipt Date: 20200818
  Transmission Date: 20201103
  Serious: Yes (Hospitalization)
  Sender: FDA-Public Use
  Company Number: US-ACTELION-A-US2020-208277

PATIENT
  Sex: Female
  Weight: 113.38 kg

DRUGS (5)
  1. UPTRAVI [Suspect]
     Active Substance: SELEXIPAG
     Indication: PULMONARY ARTERIAL HYPERTENSION
     Dosage: 800 MCG, BID
     Route: 048
  2. ELIQUIS [Concomitant]
     Active Substance: APIXABAN
  3. AMBRISENTAN [Concomitant]
     Active Substance: AMBRISENTAN
  4. DIGOXIN. [Concomitant]
     Active Substance: DIGOXIN
     Dosage: UNK
  5. ADEMPAS [Concomitant]
     Active Substance: RIOCIGUAT

REACTIONS (3)
  - Syncope [Unknown]
  - Atrial fibrillation [Unknown]
  - Gastrointestinal haemorrhage [Unknown]
